FAERS Safety Report 10593868 (Version 1)
Quarter: 2014Q4

REPORT INFORMATION
  Report Type: Spontaneous
  Country: CA (occurrence: CA)
  Receive Date: 20141119
  Receipt Date: 20141119
  Transmission Date: 20150529
  Serious: Yes (Other)
  Sender: FDA-Public Use
  Company Number: CA-ACTAVIS-2014-24862

PATIENT
  Age: 88 Year
  Sex: Female
  Weight: 78 kg

DRUGS (3)
  1. TELMISARTAN (UNKNOWN) [Suspect]
     Active Substance: TELMISARTAN
     Indication: PRODUCT USED FOR UNKNOWN INDICATION
     Dosage: 80 MG, TABLET, DAILY
     Route: 048
  2. ATENOLOL BP [Concomitant]
     Indication: PRODUCT USED FOR UNKNOWN INDICATION
     Dosage: TABLET
  3. PLAVIX [Concomitant]
     Active Substance: CLOPIDOGREL BISULFATE
     Indication: PRODUCT USED FOR UNKNOWN INDICATION
     Dosage: TABLET

REACTIONS (5)
  - Syncope [Recovered/Resolved]
  - Ataxia [Recovered/Resolved]
  - Orthostatic hypertension [Recovered/Resolved]
  - Product substitution issue [Recovered/Resolved]
  - Vertigo [Recovered/Resolved]
